FAERS Safety Report 9160229 (Version 1)
Quarter: 2013Q1

REPORT INFORMATION
  Report Type: Report from Study
  Country: FR (occurrence: FR)
  Receive Date: 20130313
  Receipt Date: 20130313
  Transmission Date: 20140127
  Serious: Yes (Hospitalization)
  Sender: FDA-Public Use
  Company Number: FR-ROCHE-1199487

PATIENT
  Age: 60 Year
  Sex: Male

DRUGS (29)
  1. TOCILIZUMAB [Suspect]
     Indication: RHEUMATOID ARTHRITIS
     Route: 041
     Dates: start: 20101124, end: 20121126
  2. TOCILIZUMAB [Suspect]
     Route: 041
     Dates: start: 20101228
  3. TOCILIZUMAB [Suspect]
     Route: 041
  4. TOCILIZUMAB [Suspect]
     Route: 041
     Dates: start: 20110224
  5. TOCILIZUMAB [Suspect]
     Route: 041
     Dates: start: 20110329
  6. TOCILIZUMAB [Suspect]
     Route: 041
     Dates: start: 20110424
  7. TOCILIZUMAB [Suspect]
     Route: 041
     Dates: start: 20110526
  8. TOCILIZUMAB [Suspect]
     Route: 041
     Dates: start: 20110623
  9. TOCILIZUMAB [Suspect]
     Route: 041
     Dates: start: 20110722
  10. TOCILIZUMAB [Suspect]
     Route: 041
     Dates: start: 20110829
  11. TOCILIZUMAB [Suspect]
     Route: 041
     Dates: start: 20110926
  12. TOCILIZUMAB [Suspect]
     Route: 041
     Dates: start: 20111024
  13. TOCILIZUMAB [Suspect]
     Route: 041
     Dates: start: 20111205
  14. TOCILIZUMAB [Suspect]
     Route: 041
     Dates: start: 20120210
  15. TOCILIZUMAB [Suspect]
     Route: 041
     Dates: start: 20120312
  16. TOCILIZUMAB [Suspect]
     Route: 041
     Dates: start: 20120410
  17. TOCILIZUMAB [Suspect]
     Route: 041
     Dates: start: 20120507
  18. TOCILIZUMAB [Suspect]
     Route: 041
     Dates: start: 20121001
  19. TOCILIZUMAB [Suspect]
     Route: 041
     Dates: start: 20121029
  20. TOCILIZUMAB [Suspect]
     Route: 041
     Dates: start: 20121126
  21. CORTANCYL [Suspect]
     Indication: PRODUCT USED FOR UNKNOWN INDICATION
     Route: 065
  22. CORTANCYL [Suspect]
     Route: 065
  23. CORTANCYL [Suspect]
     Route: 065
  24. CORTANCYL [Suspect]
     Route: 065
  25. CORTANCYL [Suspect]
     Route: 065
  26. METHOTREXATE [Suspect]
     Indication: PRODUCT USED FOR UNKNOWN INDICATION
     Route: 065
  27. INEXIUM [Concomitant]
     Route: 065
  28. FOSAMAX [Concomitant]
     Route: 065
  29. SPECIAFOLDINE [Concomitant]
     Route: 065

REACTIONS (2)
  - Toe operation [Recovered/Resolved]
  - Laceration [Recovered/Resolved with Sequelae]
